FAERS Safety Report 17358924 (Version 1)
Quarter: 2020Q1

REPORT INFORMATION
  Report Type: Spontaneous
  Country: FI (occurrence: FI)
  Receive Date: 20200202
  Receipt Date: 20200202
  Transmission Date: 20200409
  Serious: Yes (Disabling)
  Sender: FDA-Public Use
  Company Number: FI-NOVOPROD-709058

PATIENT
  Age: 75 Year
  Sex: Male

DRUGS (1)
  1. TRESIBA [Suspect]
     Active Substance: INSULIN DEGLUDEC
     Indication: DIABETES MELLITUS
     Dosage: 15 IU, QD
     Route: 058
     Dates: start: 20191101, end: 20191111

REACTIONS (1)
  - Sudden hearing loss [Not Recovered/Not Resolved]

NARRATIVE: CASE EVENT DATE: 20191112
